FAERS Safety Report 23264732 (Version 3)
Quarter: 2024Q1

REPORT INFORMATION
  Report Type: Report from Study
  Country: US (occurrence: US)
  Receive Date: 20231206
  Receipt Date: 20240203
  Transmission Date: 20240410
  Serious: Yes (Hospitalization, Other)
  Sender: FDA-Public Use
  Company Number: US-ABBVIE-5525535

PATIENT
  Age: 64 Year
  Sex: Female
  Weight: 52.163 kg

DRUGS (3)
  1. HUMIRA [Suspect]
     Active Substance: ADALIMUMAB
     Indication: Crohn^s disease
     Dosage: FORM STRENGTH WAS 40 MILLIGRAM
     Route: 058
     Dates: start: 2021, end: 20230920
  2. HUMIRA [Suspect]
     Active Substance: ADALIMUMAB
     Indication: Crohn^s disease
  3. PANTOPRAZOLE [Concomitant]
     Active Substance: PANTOPRAZOLE
     Indication: Gastrooesophageal reflux disease

REACTIONS (7)
  - Intestinal mass [Recovering/Resolving]
  - Gastrointestinal stoma output increased [Not Recovered/Not Resolved]
  - Colitis ulcerative [Recovering/Resolving]
  - Proctitis [Recovering/Resolving]
  - Gait disturbance [Recovered/Resolved]
  - Intestinal perforation [Recovering/Resolving]
  - Crohn^s disease [Recovered/Resolved]

NARRATIVE: CASE EVENT DATE: 20231110
